FAERS Safety Report 9498177 (Version 1)
Quarter: 2013Q3

REPORT INFORMATION
  Report Type: Spontaneous
  Country: US (occurrence: US)
  Receive Date: 20130904
  Receipt Date: 20130904
  Transmission Date: 20140515
  Serious: No
  Sender: FDA-Public Use
  Company Number: US-AMGEN-USASP2013059136

PATIENT
  Age: 75 Year
  Sex: Male

DRUGS (2)
  1. ENBREL [Suspect]
     Indication: PSORIATIC ARTHROPATHY
     Dosage: 25 MG, 2 TIMES/WK, SOMETIMES ON THE SAME DAY
     Route: 065
     Dates: start: 20010801
  2. ENBREL [Suspect]
     Indication: PSORIASIS

REACTIONS (1)
  - Mobility decreased [Recovered/Resolved]
